FAERS Safety Report 7293256-1 (Version None)
Quarter: 2011Q1

REPORT INFORMATION
  Report Type: 
  Country: None (occurrence: None)
  Receive Date: 20110204
  Receipt Date: 20110123
  Transmission Date: 20110831
  Serious: Yes (Other)
  Sender: FDA-Public Use
  Company Number: A0909397A

PATIENT
  Sex: Female

DRUGS (1)
  1. SODIUM FLUORIDE (FORMULATION UNKNOWN) (SODIUM FLUORIDE) [Suspect]
     Dosage: DENTAL
     Route: 004

REACTIONS (1)
  - NEOPLASM [None]
